FAERS Safety Report 6181871-8 (Version None)
Quarter: 2009Q2

REPORT INFORMATION
  Report Type: 
  Country: None (occurrence: None)
  Receive Date: 20090504
  Receipt Date: 20090424
  Transmission Date: 20091009
  Serious: Yes (Other)
  Sender: FDA-Public Use
  Company Number: JHP200900122

PATIENT
  Sex: Female

DRUGS (7)
  1. PITRESSIN [Suspect]
     Indication: HAEMOSTASIS
     Dosage: SEE IMAGE
     Route: 050
  2. MEPIVACAINE (MEPIVACAINE), 1 % [Concomitant]
  3. PROPOFOL [Concomitant]
  4. FENTANYL-100 [Concomitant]
  5. ROCURONIUM BROMIDE [Concomitant]
  6. SEVOFLURANE [Concomitant]
  7. ROPIVACAINE (ROPIVACAINE), 0.375 % [Concomitant]

REACTIONS (1)
  - OLIGURIA [None]
